FAERS Safety Report 18427610 (Version 1)
Quarter: 2020Q4

REPORT INFORMATION
  Report Type: Spontaneous
  Country: US (occurrence: US)
  Receive Date: 20201026
  Receipt Date: 20201026
  Transmission Date: 20210114
  Serious: Yes (Hospitalization)
  Sender: FDA-Public Use
  Company Number: None

PATIENT
  Age: 74 Year

DRUGS (14)
  1. ZOLPIDEM [Concomitant]
     Active Substance: ZOLPIDEM TARTRATE
  2. ALBUTEROL AER HFA [Concomitant]
  3. ALPRAZOLAM. [Concomitant]
     Active Substance: ALPRAZOLAM
  4. TIZANIDINE. [Concomitant]
     Active Substance: TIZANIDINE
  5. TROKENDI XR [Concomitant]
     Active Substance: TOPIRAMATE
  6. AZITHROMYCIN ANHYDROUS. [Concomitant]
     Active Substance: AZITHROMYCIN ANHYDROUS
  7. CYANOCOBALAM [Concomitant]
     Active Substance: CYANOCOBALAMIN
  8. NYSTATIN. [Concomitant]
     Active Substance: NYSTATIN
  9. FLUTICASONE. [Concomitant]
     Active Substance: FLUTICASONE
  10. GABAPENTIN. [Concomitant]
     Active Substance: GABAPENTIN
  11. FORTEO [Suspect]
     Active Substance: TERIPARATIDE
     Indication: OESOPHAGEAL DISORDER
     Route: 058
     Dates: start: 20190228
  12. OXYCODONE [Concomitant]
     Active Substance: OXYCODONE
  13. DULOXETINE. [Concomitant]
     Active Substance: DULOXETINE
  14. VALACYCLOVIR [Concomitant]
     Active Substance: VALACYCLOVIR HYDROCHLORIDE

REACTIONS (1)
  - COVID-19 [None]
